FAERS Safety Report 5445461-4 (Version None)
Quarter: 2007Q3

REPORT INFORMATION
  Report Type: 
  Country: None (occurrence: None)
  Receive Date: 20070906
  Receipt Date: 20070904
  Transmission Date: 20080115
  Serious: Yes (Hospitalization)
  Sender: FDA-Public Use
  Company Number: NL-ROXANE LABORATORIES, INC-2007-BP-20444RO

PATIENT
  Age: 44 Year
  Sex: Female

DRUGS (9)
  1. PAROXETINE [Suspect]
  2. MIDAZOLAM HCL [Suspect]
     Indication: SEDATIVE THERAPY
     Route: 042
  3. HYDROCHLOROTHIAZIDE [Suspect]
     Indication: HYPERTENSION
  4. OXAZEPAM [Suspect]
  5. TEMAZEPAM [Suspect]
  6. ATENOLOL [Suspect]
     Indication: HYPERTENSION
  7. OLANZAPINE [Suspect]
  8. IRBESARTAN [Suspect]
  9. NORTRIPTYLINE HCL [Suspect]

REACTIONS (12)
  - ANTIDEPRESSANT DRUG LEVEL ABOVE THERAPEUTIC [None]
  - ATRIOVENTRICULAR BLOCK FIRST DEGREE [None]
  - BUNDLE BRANCH BLOCK RIGHT [None]
  - COMA [None]
  - DYSKINESIA [None]
  - ELECTROCARDIOGRAM ABNORMAL [None]
  - GRAND MAL CONVULSION [None]
  - HYPOTENSION [None]
  - LOSS OF CONSCIOUSNESS [None]
  - PNEUMONIA [None]
  - RESPIRATORY FAILURE [None]
  - SINUS TACHYCARDIA [None]
